FAERS Safety Report 15075131 (Version 1)
Quarter: 2018Q2

REPORT INFORMATION
  Report Type: Spontaneous
  Country: US (occurrence: US)
  Receive Date: 20180627
  Receipt Date: 20180627
  Transmission Date: 20180711
  Serious: Yes (Other)
  Sender: FDA-Public Use
  Company Number: US-SAOL THERAPEUTICS-2017SAO01219

PATIENT
  Age: 31 Year
  Sex: Female

DRUGS (3)
  1. BACLOFEN. [Suspect]
     Active Substance: BACLOFEN
     Dosage: 200 ?G\DAY
     Route: 037
     Dates: start: 20170716
  2. BACLOFEN. [Suspect]
     Active Substance: BACLOFEN
     Dosage: 660 ?G, \DAY
     Route: 037
  3. BACLOFEN. [Suspect]
     Active Substance: BACLOFEN
     Dosage: 660.1 ?G, \DAY
     Route: 037
     Dates: start: 20170504

REACTIONS (3)
  - Drug withdrawal syndrome [Unknown]
  - Implant site infection [Unknown]
  - Device failure [Unknown]

NARRATIVE: CASE EVENT DATE: 20170716
